FAERS Safety Report 22320150 (Version 1)
Quarter: 2023Q2

REPORT INFORMATION
  Report Type: Spontaneous
  Country: SE (occurrence: SE)
  Receive Date: 20230515
  Receipt Date: 20230515
  Transmission Date: 20230722
  Serious: Yes (Other)
  Sender: FDA-Public Use
  Company Number: None

PATIENT
  Sex: Female
  Weight: 68 kg

DRUGS (19)
  1. CLOPIDOGREL BISULFATE [Suspect]
     Active Substance: CLOPIDOGREL BISULFATE
     Indication: Cerebrovascular accident
     Dosage: 75 MG, QD
     Route: 048
     Dates: start: 20190409, end: 20230424
  2. EMOVAT [Concomitant]
     Dosage: 1 APPLICATION
     Dates: start: 20180202
  3. OXIS [Concomitant]
     Active Substance: FORMOTEROL FUMARATE
     Dosage: 1 X 2 AS REQUIRED
     Route: 055
     Dates: start: 20160916
  4. UREA [Concomitant]
     Active Substance: UREA
     Dosage: 1 DF, PRN
     Route: 065
     Dates: start: 20220516
  5. ZOPICLONE [Concomitant]
     Active Substance: ZOPICLONE
     Dosage: 7.5 MG, QD
     Dates: start: 20160916
  6. ALENDRONATE SODIUM [Concomitant]
     Active Substance: ALENDRONATE SODIUM
     Dosage: 1 DF, QW
     Dates: start: 20181023
  7. MOVICOL [Concomitant]
     Active Substance: POLYETHYLENE GLYCOL 3350\POTASSIUM CHLORIDE\SODIUM BICARBONATE\SODIUM CHLORIDE
     Dosage: 1 SACHET IF NEEDED, MAX 3 SACHETS/DAY
     Dates: start: 20220722
  8. LOSARTAN [Concomitant]
     Active Substance: LOSARTAN
     Dosage: 100 MG, QD
     Dates: start: 20190411
  9. PREDNISOLONE [Concomitant]
     Active Substance: PREDNISOLONE
     Dosage: 5 MG, QD
     Dates: start: 20190107
  10. FENURIL [Concomitant]
     Dosage: 1 APPLICATION AS NEEDED
     Dates: start: 20170613
  11. ELIQUIS [Concomitant]
     Active Substance: APIXABAN
     Dosage: 2.5 MG
     Dates: start: 202208
  12. ATORVASTATIN [Concomitant]
     Active Substance: ATORVASTATIN
     Dates: start: 20190410
  13. LOPERAMIDE HYDROCHLORIDE [Concomitant]
     Active Substance: LOPERAMIDE HYDROCHLORIDE
     Dosage: 1 CAPSULE IF NEEDED, MAX 8 CAPSULES/DAY
     Dates: start: 20211124
  14. ACETAMINOPHEN [Concomitant]
     Active Substance: ACETAMINOPHEN
     Dates: start: 20160917
  15. OXYCODONE HYDROCHLORIDE [Concomitant]
     Active Substance: OXYCODONE HYDROCHLORIDE
     Dosage: MAX 5/DAY
     Dates: start: 20180918
  16. CARBOMER [Concomitant]
     Active Substance: CARBOMER
     Dosage: 1-2 DROPS AS REQUIRED
     Route: 055
     Dates: start: 20160916
  17. AMLODIPINE BESYLATE [Concomitant]
     Active Substance: AMLODIPINE BESYLATE
     Dosage: 10 MG, QD
     Dates: start: 20180810
  18. PULMICORT TURBUHALER [Concomitant]
     Active Substance: BUDESONIDE
     Dosage: 1-2 INHALATIONS 2 TIMES/DAY
     Route: 055
     Dates: start: 20160916
  19. SODIUM PICOSULFATE [Concomitant]
     Active Substance: SODIUM PICOSULFATE
     Dosage: 10-20 DROPS IF NEEDED
     Dates: start: 20220722

REACTIONS (3)
  - Anaemia [Recovering/Resolving]
  - Haemorrhage [Recovering/Resolving]
  - Deprescribing error [Unknown]

NARRATIVE: CASE EVENT DATE: 20220101
